FAERS Safety Report 11792697 (Version 1)
Quarter: 2015Q4

REPORT INFORMATION
  Report Type: Spontaneous
  Country: US (occurrence: None)
  Receive Date: 20151130
  Receipt Date: 20151130
  Transmission Date: 20160305
  Serious: Yes (Death, Hospitalization)
  Sender: FDA-Public Use
  Company Number: 2015US-106501

PATIENT
  Age: 23 Year
  Sex: Female

DRUGS (1)
  1. PREDNISONE (PREDNISONE) UNKNOWN [Suspect]
     Active Substance: PREDNISONE
     Indication: LUPUS NEPHRITIS

REACTIONS (3)
  - Respiratory failure [None]
  - Acute respiratory distress syndrome [None]
  - Coccidioidomycosis [None]
